FAERS Safety Report 21772147 (Version 1)
Quarter: 2022Q4

REPORT INFORMATION
  Report Type: Spontaneous
  Country: US (occurrence: US)
  Receive Date: 20221223
  Receipt Date: 20221223
  Transmission Date: 20230112
  Serious: No
  Sender: FDA-Public Use
  Company Number: US-CTI BIOPHARMA-2022US03125

PATIENT

DRUGS (13)
  1. VONJO [Suspect]
     Active Substance: PACRITINIB
     Indication: Polycythaemia vera
     Dosage: 200 MG, BID
     Route: 048
     Dates: start: 20220609
  2. ACYCLOVIR [Concomitant]
     Active Substance: ACYCLOVIR
  3. AIMOVIG [Concomitant]
     Active Substance: ERENUMAB-AOOE
  4. ALPRAZOLAM [Concomitant]
     Active Substance: ALPRAZOLAM
  5. ASPIRIN [Concomitant]
     Active Substance: ASPIRIN
  6. MELATONIN [Concomitant]
     Active Substance: MELATONIN
  7. FEDRATINIB [Concomitant]
     Active Substance: FEDRATINIB
  8. HYDROCHLOROTHIAZIDE [Concomitant]
     Active Substance: HYDROCHLOROTHIAZIDE
  9. LORATADINE [Concomitant]
     Active Substance: LORATADINE
  10. LOSARTAN [Concomitant]
     Active Substance: LOSARTAN
  11. PROPRANOLOL [Concomitant]
     Active Substance: PROPRANOLOL HYDROCHLORIDE
  12. UBRELVY [Concomitant]
     Active Substance: UBROGEPANT
  13. VENLAFAXINE [Concomitant]
     Active Substance: VENLAFAXINE HYDROCHLORIDE
     Indication: Polycythaemia vera

REACTIONS (1)
  - Urinary tract infection [Unknown]

NARRATIVE: CASE EVENT DATE: 20221003
